FAERS Safety Report 23147210 (Version 1)
Quarter: 2023Q4

REPORT INFORMATION
  Report Type: Spontaneous
  Country: DE (occurrence: DE)
  Receive Date: 20231106
  Receipt Date: 20231106
  Transmission Date: 20240110
  Serious: Yes (Death, Hospitalization, Other)
  Sender: FDA-Public Use
  Company Number: DE-drreddys-SPO/GER/23/0181988

PATIENT
  Age: 81 Year
  Sex: Female
  Weight: 76 kg

DRUGS (1)
  1. VALPROATE SODIUM [Suspect]
     Active Substance: VALPROATE SODIUM
     Indication: Product used for unknown indication
     Dosage: 600 MG 1 - 0 - 1 - 0 AB 02.05.2023 SCHRITTWEISES BEENDEN (600 MG 1 - 0 - 1 - 0 FROM 02/05/2023 GRADU
     Dates: start: 202303, end: 20230523

REACTIONS (2)
  - Jaundice [Fatal]
  - Hepatic failure [Fatal]

NARRATIVE: CASE EVENT DATE: 20230606
